FAERS Safety Report 4782756-1 (Version None)
Quarter: 2005Q3

REPORT INFORMATION
  Report Type: 
  Country: None (occurrence: None)
  Receive Date: 20050927
  Receipt Date: 20050916
  Transmission Date: 20060218
  Serious: Yes (Death)
  Sender: FDA-Public Use
  Company Number: B0394481A

PATIENT

DRUGS (11)
  1. ALKERAN [Suspect]
     Indication: HODGKIN'S DISEASE
  2. THIOTEPA [Suspect]
     Indication: HODGKIN'S DISEASE
     Dosage: CYCLIC
  3. ETOPOSIDE [Suspect]
     Indication: HODGKIN'S DISEASE
  4. MITOXANTRONE [Suspect]
     Indication: HODGKIN'S DISEASE
  5. CARBOPLATIN [Suspect]
     Indication: HODGKIN'S DISEASE
  6. CARMUSTINE [Suspect]
     Indication: HODGKIN'S DISEASE
  7. CYTARABINE [Suspect]
     Indication: HODGKIN'S DISEASE
  8. DOXORUBICIN HCL [Concomitant]
  9. BLEOMYCIN [Concomitant]
  10. VINBLASTINE [Concomitant]
  11. DACARBAZINE [Concomitant]

REACTIONS (3)
  - DRUG INEFFECTIVE [None]
  - SEPSIS [None]
  - STEM CELL TRANSPLANT [None]
